FAERS Safety Report 8342952-3 (Version None)
Quarter: 2012Q2

REPORT INFORMATION
  Report Type: 
  Country: None (occurrence: None)
  Receive Date: 20120508
  Receipt Date: 20120430
  Transmission Date: 20120825
  Serious: Yes (Hospitalization)
  Sender: FDA-Public Use
  Company Number: ES-UCBSA-056618

PATIENT
  Age: 55 Year
  Sex: Female
  Weight: 54 kg

DRUGS (6)
  1. CERTOLIZUMAB PEGOL [Suspect]
  2. IBUPROFEN [Concomitant]
     Indication: RHEUMATOID ARTHRITIS
     Dosage: DAILY DOSE: 600 MG
     Route: 048
     Dates: start: 20060101
  3. OMEPRAZOLE [Concomitant]
     Dosage: DAILY DOSE: 20 MG
     Route: 048
     Dates: start: 20060101
  4. CALCIUM/ VIT D [Concomitant]
     Dosage: 1200-880/ DAILY
     Route: 048
     Dates: start: 20060101
  5. DEFLAXACORT [Concomitant]
     Indication: RHEUMATOID ARTHRITIS
     Dosage: DAILY DOSE: 6 MG
     Route: 048
     Dates: start: 20110501
  6. LEFLUNOMIDE [Concomitant]
     Indication: RHEUMATOID ARTHRITIS
     Dosage: DAILY DOSE: 20 MG
     Route: 048
     Dates: start: 20080202

REACTIONS (1)
  - RASH GENERALISED [None]
